FAERS Safety Report 10529925 (Version 3)
Quarter: 2015Q1

REPORT INFORMATION
  Report Type: Report from Study
  Country: JP (occurrence: JP)
  Receive Date: 20141021
  Receipt Date: 20150218
  Transmission Date: 20150720
  Serious: Yes (Hospitalization)
  Sender: FDA-Public Use
  Company Number: JP-ACTELION-A-CH2012-76602

PATIENT
  Age: 6 Year
  Sex: Female

DRUGS (17)
  1. ISOPRENALINE HYDROCHLORIDE [Suspect]
     Active Substance: ISOPROTERENOL HYDROCHLORIDE
     Indication: PRODUCT USED FOR UNKNOWN INDICATION
     Route: 065
  2. SODIUM VALPROATE [Concomitant]
     Active Substance: VALPROATE SODIUM
  3. ZAVESCA [Suspect]
     Active Substance: MIGLUSTAT
     Indication: NIEMANN-PICK DISEASE
     Dosage: 100 MG, BID
     Route: 048
     Dates: start: 20120608, end: 20140130
  4. DOXAZOSIN [Suspect]
     Active Substance: DOXAZOSIN\DOXAZOSIN MESYLATE
     Indication: PRODUCT USED FOR UNKNOWN INDICATION
     Route: 065
  5. AMLODIPINE BESILATE [Concomitant]
     Active Substance: AMLODIPINE BESYLATE
  6. LEVOCARNITINE HYDROCHLORIDE [Concomitant]
     Active Substance: LEVOCARNITINE HYDROCHLORIDE
  7. INTAL [Concomitant]
     Active Substance: CROMOLYN SODIUM
  8. CARBOCISTEINE [Concomitant]
     Active Substance: CARBOCYSTEINE
  9. PROCATEROL HYDROCHLORIDE [Concomitant]
     Active Substance: PROCATEROL HYDROCHLORIDE
  10. ZAVESCA [Suspect]
     Active Substance: MIGLUSTAT
     Dosage: 200 MG, BID
     Route: 048
     Dates: start: 20140502
  11. BACLOFEN. [Concomitant]
     Active Substance: BACLOFEN
  12. PIPERACILLIN SODIUM W/TAZOBACTAM [Suspect]
     Active Substance: PIPERACILLIN SODIUM\TAZOBACTAM SODIUM
     Indication: PRODUCT USED FOR UNKNOWN INDICATION
     Route: 065
  13. FAMOTIDINE. [Concomitant]
     Active Substance: FAMOTIDINE
  14. LAMOTRIGINE. [Concomitant]
     Active Substance: LAMOTRIGINE
  15. ZAVESCA [Suspect]
     Active Substance: MIGLUSTAT
     Dosage: 100 MG, TID
     Route: 048
     Dates: start: 20140131, end: 20140501
  16. TOPIRAMATE. [Concomitant]
     Active Substance: TOPIRAMATE
  17. METHIONINE, ACTIVE [Concomitant]

REACTIONS (9)
  - Asthma [Recovering/Resolving]
  - Bronchitis [Recovered/Resolved]
  - Pneumonia [Recovering/Resolving]
  - Hypokalaemia [Recovered/Resolved]
  - Bronchopneumonia [Recovered/Resolved]
  - Atelectasis [Recovering/Resolving]
  - Diarrhoea [Recovering/Resolving]
  - Abdominal distension [Not Recovered/Not Resolved]
  - Pneumonia aspiration [Recovering/Resolving]

NARRATIVE: CASE EVENT DATE: 20120620
